FAERS Safety Report 4633985-9 (Version None)
Quarter: 2005Q1

REPORT INFORMATION
  Report Type: 
  Country: None (occurrence: None)
  Receive Date: 20050325
  Receipt Date: 20041228
  Transmission Date: 20050727
  Serious: No
  Sender: FDA-Public Use
  Company Number: USA041287034

PATIENT
  Age: 73 Year
  Sex: Female

DRUGS (1)
  1. FORTEO [Suspect]
     Indication: OSTEOPOROSIS
     Dosage: 20 UG/1 DAY
     Dates: start: 20040601

REACTIONS (6)
  - ABDOMINAL PAIN UPPER [None]
  - COUGH [None]
  - DIARRHOEA [None]
  - HEADACHE [None]
  - PHARYNGEAL ERYTHEMA [None]
  - VIRAL INFECTION [None]
